FAERS Safety Report 4422637-6 (Version None)
Quarter: 2004Q3

REPORT INFORMATION
  Report Type: 
  Country: None (occurrence: None)
  Receive Date: 20040713
  Receipt Date: 20030501
  Transmission Date: 20050211
  Serious: No
  Sender: FDA-Public Use
  Company Number: PHEH2003US03175

PATIENT
  Age: 58 Year
  Sex: Female

DRUGS (3)
  1. ELIDEL [Suspect]
     Indication: ECZEMA
     Dosage: BID, TOPICAL
     Route: 061
     Dates: start: 20030327, end: 20030401
  2. FOSAMAX [Concomitant]
  3. PREMPRO [Concomitant]

REACTIONS (3)
  - DIZZINESS [None]
  - HEADACHE [None]
  - LACRIMATION INCREASED [None]
